FAERS Safety Report 13832548 (Version 2)
Quarter: 2017Q4

REPORT INFORMATION
  Report Type: Spontaneous
  Country: DE (occurrence: DE)
  Receive Date: 20170804
  Receipt Date: 20171030
  Transmission Date: 20180320
  Serious: Yes (Death, Life-Threatening, Other)
  Sender: FDA-Public Use
  Company Number: PHHY2017DE113431

PATIENT
  Age: 77 Year
  Sex: Female
  Weight: 60 kg

DRUGS (18)
  1. NITROFURANTOIN. [Concomitant]
     Active Substance: NITROFURANTOIN
     Indication: URINARY TRACT INFECTION
     Dosage: 100 MG, TID
     Route: 065
  2. AROMASIN [Concomitant]
     Active Substance: EXEMESTANE
     Indication: PRODUCT USED FOR UNKNOWN INDICATION
     Dosage: UNK UNK, QD
     Route: 065
  3. NOVALGIN [Concomitant]
     Active Substance: METAMIZOLE SODIUM
     Indication: PRODUCT USED FOR UNKNOWN INDICATION
     Route: 065
  4. EXEMESTAN [Concomitant]
     Active Substance: EXEMESTANE
     Indication: BREAST CANCER FEMALE
     Dosage: 25 MG, UNK
     Route: 048
     Dates: start: 20170326
  5. SIMVAHEXAL [Concomitant]
     Active Substance: SIMVASTATIN
     Indication: PRODUCT USED FOR UNKNOWN INDICATION
     Dosage: 20 MG, UNK
     Route: 065
  6. IRON [Concomitant]
     Active Substance: IRON
     Indication: PRODUCT USED FOR UNKNOWN INDICATION
     Route: 065
  7. TRAMAL [Concomitant]
     Active Substance: TRAMADOL
     Indication: PRODUCT USED FOR UNKNOWN INDICATION
     Dosage: 150 MG, UNK
     Route: 065
  8. LEVOTHYROXINE. [Concomitant]
     Active Substance: LEVOTHYROXINE
     Indication: THYROIDECTOMY
     Dosage: 100 UG, QD
     Route: 048
  9. MARCUMAR [Concomitant]
     Active Substance: PHENPROCOUMON
     Indication: PRODUCT USED FOR UNKNOWN INDICATION
     Dosage: UNK
  10. VIGANTOLETTEN [Concomitant]
     Active Substance: CHOLECALCIFEROL
     Indication: PRODUCT USED FOR UNKNOWN INDICATION
     Dosage: 1000 MG, QD
     Route: 065
  11. AFINITOR [Suspect]
     Active Substance: EVEROLIMUS
     Indication: BREAST CANCER FEMALE
     Dosage: 5 MG, QD
     Route: 048
     Dates: start: 20170331, end: 20170510
  12. XGEVA [Concomitant]
     Active Substance: DENOSUMAB
     Indication: METASTASES TO BONE
     Dosage: 120 MG, UNK
     Route: 058
     Dates: start: 20170411
  13. RAMIPRIL. [Concomitant]
     Active Substance: RAMIPRIL
     Indication: PRODUCT USED FOR UNKNOWN INDICATION
     Dosage: 1 DF, QD (5MG/25MG)
     Route: 065
  14. NOVAMINSULFON LICHTENSTEIN [Concomitant]
     Active Substance: METAMIZOLE SODIUM
     Indication: PRODUCT USED FOR UNKNOWN INDICATION
     Dosage: 500 MG, UNK
     Route: 065
  15. METOPROGAMMA [Concomitant]
     Indication: PRODUCT USED FOR UNKNOWN INDICATION
     Dosage: 47.5 MG, QD
     Route: 048
  16. METOPROLOL. [Concomitant]
     Active Substance: METOPROLOL
     Indication: PRODUCT USED FOR UNKNOWN INDICATION
     Dosage: 47.5 MG, UNK
     Route: 065
  17. AXURA [Concomitant]
     Active Substance: MEMANTINE HYDROCHLORIDE
     Indication: PRODUCT USED FOR UNKNOWN INDICATION
     Dosage: 20 MG, QD
     Route: 065
  18. KALINOR [Concomitant]
     Active Substance: POTASSIUM CITRATE
     Indication: PRODUCT USED FOR UNKNOWN INDICATION
     Dosage: UNK UNK, TID
     Route: 065

REACTIONS (40)
  - Osteoarthritis [Unknown]
  - Hypokalaemia [Unknown]
  - Confusional state [Recovered/Resolved]
  - Hypochromic anaemia [Unknown]
  - Disturbance in attention [Unknown]
  - Asthenia [Unknown]
  - Slow speech [Recovered/Resolved]
  - Aortic valve stenosis [Unknown]
  - Cardiac murmur [Unknown]
  - C-reactive protein increased [Unknown]
  - Atrial fibrillation [Unknown]
  - Obesity [Unknown]
  - Malaise [Unknown]
  - Hypokinesia [Unknown]
  - Angiopathy [Fatal]
  - Organic brain syndrome [Recovered/Resolved]
  - Incoherent [Recovered/Resolved]
  - Stupor [Recovered/Resolved]
  - Motor dysfunction [Recovered/Resolved]
  - Hypertensive cardiomyopathy [Unknown]
  - Haemorrhage [Unknown]
  - Dementia [Unknown]
  - Peripheral swelling [Unknown]
  - Abdominal pain upper [Unknown]
  - Hypertension [Unknown]
  - Lymphoedema [Unknown]
  - Cerebral infarction [Fatal]
  - Progressive multifocal leukoencephalopathy [Recovered/Resolved]
  - Mental impairment [Recovered/Resolved]
  - Immobile [Unknown]
  - Metastases to central nervous system [Fatal]
  - Hyperuricaemia [Unknown]
  - Arteriosclerosis coronary artery [Unknown]
  - Lymph node palpable [Unknown]
  - Gait disturbance [Unknown]
  - Oedema peripheral [Unknown]
  - Emotional poverty [Recovered/Resolved]
  - Metastases to bone [Unknown]
  - Urinary tract infection [Unknown]
  - Thyroid disorder [Unknown]

NARRATIVE: CASE EVENT DATE: 2017
